FAERS Safety Report 16292434 (Version 8)
Quarter: 2021Q1

REPORT INFORMATION
  Report Type: Spontaneous
  Country: US (occurrence: US)
  Receive Date: 20190509
  Receipt Date: 20210309
  Transmission Date: 20210419
  Serious: Yes (Hospitalization, Disabling, Other)
  Sender: FDA-Public Use
  Company Number: US-PFIZER INC-2019196798

PATIENT
  Age: 63 Year
  Sex: Male
  Weight: 125 kg

DRUGS (2)
  1. XELJANZ XR [Suspect]
     Active Substance: TOFACITINIB CITRATE
     Dosage: 11 MG, DAILY
     Route: 048
  2. XELJANZ XR [Suspect]
     Active Substance: TOFACITINIB CITRATE
     Indication: RHEUMATOID ARTHRITIS
     Dosage: 11 MG, DAILY
     Route: 048
     Dates: start: 2018, end: 20191205

REACTIONS (5)
  - Memory impairment [Unknown]
  - Condition aggravated [Unknown]
  - Pain [Unknown]
  - Lower limb fracture [Unknown]
  - Gait inability [Unknown]

NARRATIVE: CASE EVENT DATE: 2019
